FAERS Safety Report 9372931 (Version 1)
Quarter: 2013Q2

REPORT INFORMATION
  Report Type: Spontaneous
  Country: US (occurrence: US)
  Receive Date: 20130627
  Receipt Date: 20130627
  Transmission Date: 20140414
  Serious: No
  Sender: FDA-Public Use
  Company Number: US-009507513-1306USA013593

PATIENT
  Sex: Male

DRUGS (1)
  1. COPPERTONE SPORT PRO SERIES CLEAR CONTINUOUS SPRAY SPF-15 [Suspect]
     Indication: SUNBURN
     Dosage: UNK, UNKNOWN
     Route: 061

REACTIONS (1)
  - Nail discolouration [Unknown]
